FAERS Safety Report 9653596 (Version 1)
Quarter: 2013Q4

REPORT INFORMATION
  Report Type: Spontaneous
  Country: US (occurrence: US)
  Receive Date: 20131029
  Receipt Date: 20131029
  Transmission Date: 20140711
  Serious: No
  Sender: FDA-Public Use
  Company Number: US-BIOGENIDEC-2013BI079886

PATIENT
  Age: 59 Year
  Sex: Male

DRUGS (2)
  1. TECFIDERA [Suspect]
     Indication: MULTIPLE SCLEROSIS
     Route: 048
     Dates: start: 20130716
  2. TECFIDERA [Suspect]
     Indication: MULTIPLE SCLEROSIS

REACTIONS (4)
  - Asthenia [Unknown]
  - Pain [Unknown]
  - Sensation of heaviness [Unknown]
  - Prescribed underdose [Unknown]
